FAERS Safety Report 17611485 (Version 1)
Quarter: 2020Q2

REPORT INFORMATION
  Report Type: Spontaneous
  Country: US (occurrence: US)
  Receive Date: 20200401
  Receipt Date: 20200401
  Transmission Date: 20200713
  Serious: No
  Sender: FDA-Public Use
  Company Number: US-BAUSCH-BL-2020-007777

PATIENT
  Sex: Female

DRUGS (2)
  1. LUMIFY [Suspect]
     Active Substance: BRIMONIDINE TARTRATE
     Dosage: IN BOTH EYES
     Route: 047
     Dates: start: 202003
  2. LUMIFY [Suspect]
     Active Substance: BRIMONIDINE TARTRATE
     Indication: OCULAR HYPERAEMIA
     Dosage: LAST 4 TO 5 MONTHS, IN BOTH EYES
     Route: 047
     Dates: start: 2019, end: 20200308

REACTIONS (3)
  - Eye irritation [Recovered/Resolved]
  - Counterfeit product administered [Unknown]
  - Eye pain [Recovered/Resolved]

NARRATIVE: CASE EVENT DATE: 20200308
